FAERS Safety Report 5211811-7 (Version None)
Quarter: 2007Q1

REPORT INFORMATION
  Report Type: 
  Country: None (occurrence: None)
  Receive Date: 20070116
  Receipt Date: 20061124
  Transmission Date: 20070707
  Serious: No
  Sender: FDA-Public Use
  Company Number: 2006SP004734

PATIENT
  Sex: Female

DRUGS (2)
  1. DESLORATADINE [Suspect]
     Indication: RASH
     Dosage: PO
     Route: 048
  2. DESLORATADINE [Suspect]
     Indication: SNEEZING
     Dosage: PO
     Route: 048

REACTIONS (6)
  - ASTHENIA [None]
  - BLOOD PRESSURE DECREASED [None]
  - DYSPHORIA [None]
  - MALAISE [None]
  - MUSCULOSKELETAL STIFFNESS [None]
  - TACHYCARDIA [None]
